FAERS Safety Report 21166594 (Version 2)
Quarter: 2022Q3

REPORT INFORMATION
  Report Type: Spontaneous
  Country: CA (occurrence: CA)
  Receive Date: 20220803
  Receipt Date: 20220812
  Transmission Date: 20221027
  Serious: Yes (Other)
  Sender: FDA-Public Use
  Company Number: CA-GLAXOSMITHKLINE-CA2022AMR110933

PATIENT

DRUGS (1)
  1. BENLYSTA [Suspect]
     Active Substance: BELIMUMAB
     Indication: Systemic lupus erythematosus
     Dosage: UNK

REACTIONS (7)
  - Blindness transient [Recovered/Resolved]
  - Lethargy [Unknown]
  - Fatigue [Unknown]
  - Dizziness [Unknown]
  - Injection site erythema [Unknown]
  - Somnolence [Unknown]
  - Visual impairment [Unknown]

NARRATIVE: CASE EVENT DATE: 20220701
